FAERS Safety Report 8710424 (Version 2)
Quarter: 2013Q4

REPORT INFORMATION
  Report Type: Spontaneous
  Country: US (occurrence: US)
  Receive Date: 20120807
  Receipt Date: 20131101
  Transmission Date: 20140711
  Serious: No
  Sender: FDA-Public Use
  Company Number: US-009507513-1207USA004745

PATIENT
  Sex: Male
  Weight: 54.42 kg

DRUGS (13)
  1. VICTRELIS [Suspect]
     Dosage: 200 MG, TID
     Route: 048
  2. PEGASYS [Concomitant]
  3. FOSAMAX [Concomitant]
     Dosage: UNK
  4. CREON (PANCREATIN) [Concomitant]
  5. METOPROLOL [Concomitant]
     Dosage: 1 MG/ML
  6. LANTUS [Concomitant]
     Dosage: 100 ML, UNK
  7. ENALAPRIL MALEATE [Concomitant]
     Dosage: 2.5 MG, UNK
  8. OMEPRAZOLE [Concomitant]
     Dosage: 20 MG, UNK
  9. SENNA [Concomitant]
  10. DOCUSATE SODIUM [Concomitant]
     Dosage: 150/15 ML
  11. VITAMINS (UNSPECIFIED) [Concomitant]
  12. VITAMIN D (UNSPECIFIED) [Concomitant]
  13. REBETOL [Concomitant]
     Dosage: 600 MG, UNK

REACTIONS (1)
  - Anaemia [Unknown]
